FAERS Safety Report 8208204-7 (Version None)
Quarter: 2012Q1

REPORT INFORMATION
  Report Type: 
  Country: None (occurrence: None)
  Receive Date: 20120314
  Receipt Date: 20120309
  Transmission Date: 20120608
  Serious: Yes (Hospitalization)
  Sender: FDA-Public Use
  Company Number: PHHY2012AU015386

PATIENT
  Sex: Male

DRUGS (7)
  1. CLOZARIL [Suspect]
     Dosage: 12.5 MG, UNK
     Route: 048
     Dates: start: 20120302
  2. VALPROATE SODIUM [Concomitant]
     Indication: AFFECTIVE DISORDER
  3. CLOZARIL [Suspect]
     Dosage: 25 MG, UNK
     Route: 048
  4. RANITIDINE [Concomitant]
     Indication: GASTROOESOPHAGEAL REFLUX DISEASE
     Dosage: 150 MG, BID
     Route: 048
  5. ATORVASTATIN [Concomitant]
     Indication: BLOOD CHOLESTEROL
     Dosage: 40 MG IN THE MORNINGS
     Route: 048
  6. VALPROATE SODIUM [Concomitant]
     Indication: EPILEPSY
     Dosage: 500 MG, BID
     Route: 048
  7. CLOZARIL [Suspect]
     Dosage: 12.5 MG, UNK
     Route: 048
     Dates: start: 20051031

REACTIONS (6)
  - CHILLS [None]
  - HYPERHIDROSIS [None]
  - MENINGITIS BACTERIAL [None]
  - ASTHENIA [None]
  - SEPSIS [None]
  - MALAISE [None]
